FAERS Safety Report 23919966 (Version 1)
Quarter: 2024Q2

REPORT INFORMATION
  Report Type: Spontaneous
  Country: CN (occurrence: CN)
  Receive Date: 20240530
  Receipt Date: 20240530
  Transmission Date: 20240716
  Serious: Yes (Hospitalization)
  Sender: FDA-Public Use
  Company Number: CN-ELI_LILLY_AND_COMPANY-CN202405015414

PATIENT

DRUGS (1)
  1. HUMULIN 70/30 [Suspect]
     Active Substance: INSULIN HUMAN
     Indication: Diabetes mellitus
     Dosage: 300 INTERNATIONAL UNIT, UNKNOWN
     Route: 058

REACTIONS (2)
  - Illness [Unknown]
  - Discomfort [Unknown]

NARRATIVE: CASE EVENT DATE: 20240521
